FAERS Safety Report 11511801 (Version 1)
Quarter: 2015Q3

REPORT INFORMATION
  Report Type: Spontaneous
  Country: GB (occurrence: GB)
  Receive Date: 20150915
  Receipt Date: 20150915
  Transmission Date: 20151125
  Serious: Yes (Other)
  Sender: FDA-Public Use
  Company Number: GB-ACTAVIS-2015-12920

PATIENT
  Age: 65 Year
  Sex: Female
  Weight: 44 kg

DRUGS (1)
  1. LETROZOLE (UNKNOWN) [Suspect]
     Active Substance: LETROZOLE
     Indication: BREAST CANCER
     Dosage: 2.5 MG, UNK
     Route: 048
     Dates: start: 200606

REACTIONS (2)
  - Retinal haemorrhage [Unknown]
  - Retinal disorder [Unknown]

NARRATIVE: CASE EVENT DATE: 201502
